FAERS Safety Report 23592508 (Version 1)
Quarter: 2024Q1

REPORT INFORMATION
  Report Type: Spontaneous
  Country: US (occurrence: None)
  Receive Date: 20240303
  Receipt Date: 20240303
  Transmission Date: 20240409
  Serious: Yes (Disabling)
  Sender: FDA-Public Use
  Company Number: None

PATIENT
  Sex: Male

DRUGS (1)
  1. ADMELOG [Suspect]
     Active Substance: INSULIN LISPRO
     Indication: Diabetes mellitus
     Dosage: FREQUENCY : AS NEEDED;?OTHER ROUTE : SUB CUTANEOUS INJECTION VIA PUMP;?
     Route: 058
     Dates: start: 20240227, end: 20240303

REACTIONS (3)
  - Urinary retention [None]
  - Oedema [None]
  - Product quality issue [None]

NARRATIVE: CASE EVENT DATE: 20240301
